FAERS Safety Report 9739082 (Version 1)
Quarter: 2013Q4

REPORT INFORMATION
  Report Type: Spontaneous
  Country: US (occurrence: US)
  Receive Date: 20131209
  Receipt Date: 20131209
  Transmission Date: 20140711
  Serious: Yes (Other)
  Sender: FDA-Public Use
  Company Number: US-AMGEN-USASP2013085703

PATIENT
  Age: 36 Year
  Sex: Female

DRUGS (4)
  1. ENBREL [Suspect]
     Indication: PSORIATIC ARTHROPATHY
     Dosage: 50 MG, QWK
     Route: 058
     Dates: start: 201110, end: 20130109
  2. PRENATAL VITAMINS                  /02014401/ [Concomitant]
     Dosage: UNK
  3. ZOLOFT [Concomitant]
     Indication: DEPRESSION
     Dosage: 12.5 MG, QD
     Route: 048
  4. FLU [Concomitant]
     Dosage: UNK

REACTIONS (1)
  - Ectopic pregnancy [Unknown]
